FAERS Safety Report 4885567-1 (Version None)
Quarter: 2005Q4

REPORT INFORMATION
  Report Type: 
  Country: None (occurrence: None)
  Receive Date: 20051220
  Receipt Date: 20050801
  Transmission Date: 20060501
  Serious: Yes (Disabling)
  Sender: FDA-Public Use
  Company Number: HQWYE673903AUG05

PATIENT
  Sex: Female

DRUGS (8)
  1. EFFEXOR XR [Suspect]
     Indication: DEPRESSION
     Dosage: 75 MG 1X PER 1 DAY, ORAL
     Route: 048
     Dates: start: 20050707, end: 20050801
  2. FLEXERIL [Concomitant]
  3. PREMARIN [Concomitant]
  4. PROMETHAZINE [Concomitant]
  5. GABITRIL [Concomitant]
  6. METHASONE (METHADONE) [Concomitant]
  7. CHLORAL HYDRATE (CHLORAL HYDRATE) [Concomitant]
  8. OMEPRAZOLE [Concomitant]

REACTIONS (1)
  - GENERALISED OEDEMA [None]
